FAERS Safety Report 17071085 (Version 1)
Quarter: 2019Q4

REPORT INFORMATION
  Report Type: Spontaneous
  Country: US (occurrence: US)
  Receive Date: 20191025
  Receipt Date: 20191025
  Transmission Date: 20200122
  Serious: Yes (Hospitalization)
  Sender: FDA-Public Use
  Company Number: None

PATIENT
  Age: 15 Year
  Sex: Male

DRUGS (3)
  1. NUTROPIN AQ [Suspect]
     Active Substance: SOMATROPIN
     Indication: CHRONIC KIDNEY DISEASE
     Dosage: ?          OTHER FREQUENCY:6 DAYS PER WEEK ;?
     Route: 058
     Dates: start: 20150922
  2. CASDESARTAN [Concomitant]
  3. TOPROL XL [Concomitant]
     Active Substance: METOPROLOL SUCCINATE

REACTIONS (2)
  - Seizure [None]
  - Migraine [None]

NARRATIVE: CASE EVENT DATE: 20191023
